FAERS Safety Report 8560026-3 (Version None)
Quarter: 2012Q3

REPORT INFORMATION
  Report Type: 
  Country: None (occurrence: None)
  Receive Date: 20120802
  Receipt Date: 20120731
  Transmission Date: 20120928
  Serious: Yes (Other)
  Sender: FDA-Public Use
  Company Number: VE-PFIZER INC-2012158328

PATIENT
  Age: 82 Year
  Sex: Male

DRUGS (2)
  1. BISOPROLOL FUMARATE [Concomitant]
     Indication: HYPERTENSION
     Dosage: 1.25 MG, 1X/DAY
     Route: 048
  2. ZOLOFT [Suspect]
     Indication: SENILE DEMENTIA
     Dosage: UNK
     Route: 048
     Dates: start: 20110801, end: 20120501

REACTIONS (3)
  - OFF LABEL USE [None]
  - PNEUMONIA [None]
  - DYSPHAGIA [None]
